FAERS Safety Report 5912211-4 (Version None)
Quarter: 2008Q4

REPORT INFORMATION
  Report Type: 
  Country: None (occurrence: None)
  Receive Date: 20081008
  Receipt Date: 20080930
  Transmission Date: 20090506
  Serious: Yes (Hospitalization)
  Sender: FDA-Public Use
  Company Number: US-JNJFOC-20081000550

PATIENT
  Sex: Female
  Weight: 55.79 kg

DRUGS (7)
  1. DURAGESIC-100 [Suspect]
     Route: 062
  2. DURAGESIC-100 [Suspect]
     Dosage: 1 PATCH OF 50MCG/HR AND 1 PATCH OF 100 MCG/HR
     Route: 062
  3. DURAGESIC-100 [Suspect]
     Dosage: 1 PATCH OF 50UG/HR AND 1 OF 100 MCG/HR
     Route: 062
  4. DURAGESIC-100 [Suspect]
     Indication: PAIN
     Route: 062
  5. MYLAN [Suspect]
     Indication: DRUG USE FOR UNKNOWN INDICATION
     Route: 062
  6. VICODIN [Concomitant]
     Indication: PAIN
     Route: 048
  7. KLONOPIN [Concomitant]

REACTIONS (7)
  - BLOOD POTASSIUM DECREASED [None]
  - BLOOD SODIUM INCREASED [None]
  - COLITIS [None]
  - HYPERTENSION [None]
  - INAPPROPRIATE SCHEDULE OF DRUG ADMINISTRATION [None]
  - TREATMENT NONCOMPLIANCE [None]
  - WITHDRAWAL SYNDROME [None]
